FAERS Safety Report 17140005 (Version 1)
Quarter: 2019Q4

REPORT INFORMATION
  Report Type: Spontaneous
  Country: US (occurrence: US)
  Receive Date: 20191211
  Receipt Date: 20191211
  Transmission Date: 20200122
  Serious: No
  Sender: FDA-Public Use
  Company Number: US-UCBSA-2016016310

PATIENT
  Sex: Female

DRUGS (2)
  1. VIMPAT [Suspect]
     Active Substance: LACOSAMIDE
     Indication: PARTIAL SEIZURES
     Dosage: UNKNOWN DOSAGE
  2. VIMPAT [Suspect]
     Active Substance: LACOSAMIDE
     Dosage: INCREASED TO 200 MG, 2X/DAY (BID)

REACTIONS (2)
  - Seizure [Unknown]
  - Diplopia [Not Recovered/Not Resolved]
